FAERS Safety Report 15344648 (Version 6)
Quarter: 2019Q2

REPORT INFORMATION
  Report Type: Spontaneous
  Country: US (occurrence: US)
  Receive Date: 20180903
  Receipt Date: 20190425
  Transmission Date: 20190711
  Serious: No
  Sender: FDA-Public Use
  Company Number: US-ASTRAZENECA-2018SF03308

PATIENT
  Age: 17227 Day
  Sex: Female
  Weight: 52.2 kg

DRUGS (17)
  1. SYMBICORT [Suspect]
     Active Substance: BUDESONIDE\FORMOTEROL FUMARATE DIHYDRATE
     Indication: DYSPNOEA
     Dosage: 160/4.5 MCG, 2 PUFFS TWICE DAILY UNKNOWN
     Route: 055
     Dates: start: 201806
  2. SYMBICORT [Suspect]
     Active Substance: BUDESONIDE\FORMOTEROL FUMARATE DIHYDRATE
     Indication: CHRONIC OBSTRUCTIVE PULMONARY DISEASE
     Dosage: UNKNOWN
     Route: 055
     Dates: start: 20181014
  3. SYMBICORT [Suspect]
     Active Substance: BUDESONIDE\FORMOTEROL FUMARATE DIHYDRATE
     Indication: RESPIRATORY DISORDER
     Dosage: UNKNOWN
     Route: 055
     Dates: start: 20181104
  4. SYMBICORT [Suspect]
     Active Substance: BUDESONIDE\FORMOTEROL FUMARATE DIHYDRATE
     Indication: DYSPNOEA
     Dosage: UNKNOWN
     Route: 055
     Dates: start: 20181104
  5. SYMBICORT [Suspect]
     Active Substance: BUDESONIDE\FORMOTEROL FUMARATE DIHYDRATE
     Indication: RESPIRATORY DISORDER
     Dosage: MIGHT GET A PUFF OR HALF A PUFF UNKNOWN
     Route: 055
  6. SYMBICORT [Suspect]
     Active Substance: BUDESONIDE\FORMOTEROL FUMARATE DIHYDRATE
     Indication: DYSPNOEA
     Dosage: MIGHT GET A PUFF OR HALF A PUFF UNKNOWN
     Route: 055
  7. SYMBICORT [Suspect]
     Active Substance: BUDESONIDE\FORMOTEROL FUMARATE DIHYDRATE
     Indication: DYSPNOEA
     Dosage: UNKNOWN
     Route: 055
     Dates: start: 20181014
  8. SYMBICORT [Suspect]
     Active Substance: BUDESONIDE\FORMOTEROL FUMARATE DIHYDRATE
     Indication: RESPIRATORY DISORDER
     Dosage: 160/4.5 MCG, 2 PUFFS TWICE DAILY UNKNOWN
     Route: 055
     Dates: start: 201806
  9. SYMBICORT [Suspect]
     Active Substance: BUDESONIDE\FORMOTEROL FUMARATE DIHYDRATE
     Indication: RESPIRATORY DISORDER
     Dosage: 160/4.5 MCG, TWO PUFFS TWO TIMES A DAY UNKNOWN
     Route: 055
     Dates: start: 201812
  10. SYMBICORT [Suspect]
     Active Substance: BUDESONIDE\FORMOTEROL FUMARATE DIHYDRATE
     Indication: CHRONIC OBSTRUCTIVE PULMONARY DISEASE
     Dosage: 160/4.5 MCG, TWO PUFFS TWO TIMES A DAY UNKNOWN
     Route: 055
     Dates: start: 201812
  11. METAMUCIL [Concomitant]
     Active Substance: PLANTAGO SEED
  12. SYMBICORT [Suspect]
     Active Substance: BUDESONIDE\FORMOTEROL FUMARATE DIHYDRATE
     Indication: CHRONIC OBSTRUCTIVE PULMONARY DISEASE
     Dosage: MIGHT GET A PUFF OR HALF A PUFF UNKNOWN
     Route: 055
  13. SYMBICORT [Suspect]
     Active Substance: BUDESONIDE\FORMOTEROL FUMARATE DIHYDRATE
     Indication: CHRONIC OBSTRUCTIVE PULMONARY DISEASE
     Dosage: 160/4.5 MCG, 2 PUFFS TWICE DAILY UNKNOWN
     Route: 055
     Dates: start: 201806
  14. VITAMINS NOS [Concomitant]
     Active Substance: VITAMINS
     Indication: GENERAL PHYSICAL HEALTH DETERIORATION
  15. SYMBICORT [Suspect]
     Active Substance: BUDESONIDE\FORMOTEROL FUMARATE DIHYDRATE
     Indication: CHRONIC OBSTRUCTIVE PULMONARY DISEASE
     Dosage: UNKNOWN
     Route: 055
     Dates: start: 20181104
  16. SYMBICORT [Suspect]
     Active Substance: BUDESONIDE\FORMOTEROL FUMARATE DIHYDRATE
     Indication: RESPIRATORY DISORDER
     Dosage: UNKNOWN
     Route: 055
     Dates: start: 20181014
  17. SYMBICORT [Suspect]
     Active Substance: BUDESONIDE\FORMOTEROL FUMARATE DIHYDRATE
     Indication: DYSPNOEA
     Dosage: 160/4.5 MCG, TWO PUFFS TWO TIMES A DAY UNKNOWN
     Route: 055
     Dates: start: 201812

REACTIONS (10)
  - Dyspnoea [Not Recovered/Not Resolved]
  - Weight increased [Not Recovered/Not Resolved]
  - Intentional product misuse [Unknown]
  - Product use in unapproved indication [Unknown]
  - Drug ineffective [Not Recovered/Not Resolved]
  - Device malfunction [Not Recovered/Not Resolved]
  - Incorrect dose administered [Unknown]
  - Wheezing [Not Recovered/Not Resolved]
  - Product taste abnormal [Unknown]
  - Off label use [Not Recovered/Not Resolved]

NARRATIVE: CASE EVENT DATE: 201806
